FAERS Safety Report 4941580-7 (Version None)
Quarter: 2006Q1

REPORT INFORMATION
  Report Type: 
  Country: None (occurrence: None)
  Receive Date: 20060307
  Receipt Date: 20060220
  Transmission Date: 20060701
  Serious: Yes (Hospitalization, Other)
  Sender: FDA-Public Use
  Company Number: 2006AL000494

PATIENT
  Age: 46 Year
  Sex: Female
  Weight: 123 kg

DRUGS (8)
  1. CARBAMAZEPINE [Suspect]
     Indication: AFFECTIVE DISORDER
     Dosage: 600 MG; QD; PO
     Route: 048
  2. CARBAMAZEPINE [Suspect]
     Indication: CONVULSION
     Dosage: 600 MG; QD; PO
     Route: 048
  3. RISPERIDONE [Concomitant]
  4. DIVALPROEX SODIUM [Concomitant]
  5. LEVOTHYROXINE SODIUM [Concomitant]
  6. PAROXETINE HCL [Concomitant]
  7. TRAZODONE HCL [Concomitant]
  8. FUROSEMIDE [Concomitant]

REACTIONS (1)
  - HYPONATRAEMIA [None]
